FAERS Safety Report 14119314 (Version 2)
Quarter: 2017Q4

REPORT INFORMATION
  Report Type: Spontaneous
  Country: US (occurrence: US)
  Receive Date: 20171024
  Receipt Date: 20171204
  Transmission Date: 20180321
  Serious: No
  Sender: FDA-Public Use
  Company Number: US-PFIZER INC-2017458431

PATIENT
  Age: 8 Year
  Sex: Male

DRUGS (1)
  1. GENOTROPIN [Suspect]
     Active Substance: SOMATROPIN
     Indication: GROWTH HORMONE DEFICIENCY
     Dosage: 0.6 MG, 1X/DAY (BEFORE BEDTIME)
     Route: 058
     Dates: start: 201707

REACTIONS (3)
  - Drug dose omission [Unknown]
  - Device use issue [Unknown]
  - Malaise [Unknown]

NARRATIVE: CASE EVENT DATE: 20171122
